FAERS Safety Report 20883256 (Version 1)
Quarter: 2022Q2

REPORT INFORMATION
  Report Type: Spontaneous
  Country: US (occurrence: US)
  Receive Date: 20220527
  Receipt Date: 20220527
  Transmission Date: 20220721
  Serious: No
  Sender: FDA-Public Use
  Company Number: US-PFIZER INC-202200743553

PATIENT
  Age: 62 Year
  Sex: Female

DRUGS (8)
  1. PAXLOVID [Suspect]
     Active Substance: NIRMATRELVIR\RITONAVIR
     Indication: COVID-19 treatment
     Dosage: UNK
     Dates: start: 20220509, end: 20220514
  2. BUSPIRONE [Concomitant]
     Active Substance: BUSPIRONE HYDROCHLORIDE
     Dosage: UNK, 2X/DAY
     Dates: start: 20220101, end: 20220521
  3. BUPROPION [Concomitant]
     Active Substance: BUPROPION
     Dosage: UNK
     Dates: start: 20220101, end: 20220521
  4. DULOXETINE [Concomitant]
     Active Substance: DULOXETINE
     Dosage: UNK
     Dates: start: 20220101, end: 20220521
  5. VALACYCLOVIR HYDROCHLORIDE [Concomitant]
     Active Substance: VALACYCLOVIR HYDROCHLORIDE
     Dosage: UNK
     Dates: start: 20220101, end: 20220521
  6. LATANOPROST [Concomitant]
     Active Substance: LATANOPROST
     Dosage: UNK
     Dates: start: 20220101, end: 20220521
  7. ESTRADIOL [Concomitant]
     Active Substance: ESTRADIOL
     Dosage: UNK
     Dates: start: 20220101, end: 20220521
  8. ACETAMINOPHEN [Concomitant]
     Active Substance: ACETAMINOPHEN
     Dosage: UNK
     Dates: start: 20220508, end: 20220514

REACTIONS (7)
  - COVID-19 [Not Recovered/Not Resolved]
  - Disease recurrence [Not Recovered/Not Resolved]
  - Insomnia [Not Recovered/Not Resolved]
  - Headache [Not Recovered/Not Resolved]
  - Diarrhoea [Not Recovered/Not Resolved]
  - Aggression [Not Recovered/Not Resolved]
  - Dissociation [Not Recovered/Not Resolved]

NARRATIVE: CASE EVENT DATE: 20220520
